FAERS Safety Report 17958697 (Version 1)
Quarter: 2020Q2

REPORT INFORMATION
  Report Type: Spontaneous
  Country: CA (occurrence: CA)
  Receive Date: 20200630
  Receipt Date: 20200630
  Transmission Date: 20200714
  Serious: Yes (Disabling)
  Sender: FDA-Public Use
  Company Number: CA-PFIZER INC-2020246654

PATIENT
  Age: 77 Year
  Sex: Female
  Weight: 132 kg

DRUGS (6)
  1. ASA [Concomitant]
     Active Substance: ASPIRIN
     Dosage: UNK
     Route: 065
  2. HYDROXYCHLOROQUINE [Concomitant]
     Active Substance: HYDROXYCHLOROQUINE
     Dosage: UNK
     Route: 065
  3. RISEDRONATE SODIUM. [Suspect]
     Active Substance: RISEDRONATE SODIUM
     Indication: OSTEOPOROSIS
     Dosage: 1 DF, 1X/DAY (1 EVERY 1 DAYS)
     Route: 048
  4. EURO D [Concomitant]
     Dosage: UNK
     Route: 065
  5. QUINAPRIL. [Suspect]
     Active Substance: QUINAPRIL
     Dosage: UNK
     Route: 065
  6. CALCIUM [Concomitant]
     Active Substance: CALCIUM
     Dosage: UNK
     Route: 065

REACTIONS (4)
  - Gingival discomfort [Recovering/Resolving]
  - Swollen tongue [Recovering/Resolving]
  - Glossodynia [Recovering/Resolving]
  - Oral pain [Recovering/Resolving]
